FAERS Safety Report 8477367-0 (Version None)
Quarter: 2012Q2

REPORT INFORMATION
  Report Type: 
  Country: None (occurrence: None)
  Receive Date: 20120620
  Receipt Date: 20120608
  Transmission Date: 20120825
  Serious: Yes (Hospitalization)
  Sender: FDA-Public Use
  Company Number: DSA_57936_2012

PATIENT
  Age: 23 Year
  Sex: Male

DRUGS (4)
  1. PREDNISOLONE [Concomitant]
  2. NIPENT [Suspect]
     Indication: PRODUCT USED FOR UNKNOWN INDICATION
     Dosage: (DF INTRAVENOUS (NOT OTHERWISE SPECIFED))
     Route: 042
     Dates: start: 20120206, end: 20120206
  3. FLAGYL [Suspect]
     Indication: CLOSTRIDIUM DIFFICILE COLITIS
     Dosage: (DF ORAL)
     Route: 048
     Dates: start: 20120131, end: 20120216
  4. ROCEPHIN [Suspect]
     Indication: PRODUCT USED FOR UNKNOWN INDICATION
     Dosage: (DF)
     Dates: start: 20120201

REACTIONS (5)
  - HEPATITIS FULMINANT [None]
  - HYPOKALAEMIA [None]
  - DIARRHOEA [None]
  - WEIGHT DECREASED [None]
  - CLOSTRIDIUM DIFFICILE COLITIS [None]
